FAERS Safety Report 5132025-5 (Version None)
Quarter: 2006Q4

REPORT INFORMATION
  Report Type: 
  Country: None (occurrence: None)
  Receive Date: 20061017
  Receipt Date: 20061004
  Transmission Date: 20070319
  Serious: Yes (Hospitalization, Other)
  Sender: FDA-Public Use
  Company Number: 2006096081

PATIENT
  Age: 55 Year
  Sex: Female
  Weight: 72.5755 kg

DRUGS (3)
  1. BEXTRA [Suspect]
     Indication: BACK PAIN
     Dosage: (20 MG)
     Dates: start: 20040511, end: 20041028
  2. BEXTRA [Suspect]
     Indication: OSTEOARTHRITIS
     Dosage: (20 MG)
     Dates: start: 20040511, end: 20041028
  3. BEXTRA [Suspect]
     Indication: RHEUMATOID ARTHRITIS
     Dosage: (20 MG)
     Dates: start: 20040511, end: 20041028

REACTIONS (3)
  - CARDIOVASCULAR DISORDER [None]
  - CEREBROVASCULAR ACCIDENT [None]
  - INJURY [None]
